FAERS Safety Report 6642764-2 (Version None)
Quarter: 2010Q1

REPORT INFORMATION
  Report Type: 
  Country: None (occurrence: None)
  Receive Date: 20100319
  Receipt Date: 20100310
  Transmission Date: 20100710
  Serious: Yes (Hospitalization, Other)
  Sender: FDA-Public Use
  Company Number: US-ELI_LILLY_AND_COMPANY-US200903003334

PATIENT
  Sex: Male
  Weight: 99.773 kg

DRUGS (39)
  1. BYETTA [Suspect]
     Dosage: 5 UG, UNK
     Dates: start: 20070701
  2. BYETTA [Suspect]
     Dosage: 10 UG, UNK
  3. BYETTA [Suspect]
     Dosage: 5 UG, UNK
     Dates: end: 20080801
  4. LANTUS [Concomitant]
  5. NOVOLOG [Concomitant]
  6. NIASPAN [Concomitant]
  7. HUMALOG [Concomitant]
  8. HUMALOG [Concomitant]
  9. ACTOS [Concomitant]
  10. CELEBREX [Concomitant]
  11. VITAPLEX [Concomitant]
  12. AVODART [Concomitant]
  13. FEXOFENADINE [Concomitant]
  14. ZETIA [Concomitant]
  15. TRAMADOL HCL [Concomitant]
  16. OMEPRAZOLE [Concomitant]
  17. GEODON [Concomitant]
  18. FUROSEMIDE [Concomitant]
  19. DIPHENOXYLATE HCL + ATROPINE SULFATE [Concomitant]
  20. FLOMAX [Concomitant]
  21. TRICOR [Concomitant]
  22. ATACAND [Concomitant]
  23. LYRICA [Concomitant]
  24. AMITRIPTYLINE HCL [Concomitant]
  25. CIPROFLOXACIN [Concomitant]
  26. LORAZEPAM [Concomitant]
  27. NAPROXEN [Concomitant]
  28. PROPOXYPHENE NAPSYLATE W/PARACETAMOL [Concomitant]
  29. PROTONIX [Concomitant]
  30. INVEGA [Concomitant]
  31. FOLIC ACID [Concomitant]
  32. CLARITIN [Concomitant]
  33. PROLIXIN [Concomitant]
  34. K-DUR [Concomitant]
  35. LEVAQUIN [Concomitant]
  36. NICOTINE [Concomitant]
  37. NYSTATIN [Concomitant]
  38. HALDOL [Concomitant]
  39. ATIVAN [Concomitant]

REACTIONS (3)
  - OFF LABEL USE [None]
  - PANCREATITIS ACUTE [None]
  - PANCREATITIS CHRONIC [None]
